FAERS Safety Report 5196256-0 (Version None)
Quarter: 2007Q1

REPORT INFORMATION
  Report Type: 
  Country: None (occurrence: None)
  Receive Date: 20070102
  Receipt Date: 20061221
  Transmission Date: 20070707
  Serious: Yes (Death)
  Sender: FDA-Public Use
  Company Number: ES-PFIZER INC-2006135436

PATIENT
  Sex: Female

DRUGS (8)
  1. SU-011,248 [Suspect]
     Indication: METASTATIC RENAL CELL CARCINOMA
     Route: 048
     Dates: start: 20060912, end: 20061031
  2. FENTANYL [Concomitant]
     Route: 058
  3. SEGURIL [Concomitant]
     Route: 048
     Dates: end: 20061031
  4. DUPHALAC [Concomitant]
     Route: 048
     Dates: end: 20061031
  5. METAMIZOL ^NORMON^ [Concomitant]
     Route: 048
     Dates: end: 20061031
  6. HEPARIN [Concomitant]
     Route: 048
     Dates: end: 20061031
  7. ORFIDAL [Concomitant]
     Route: 058
     Dates: end: 20061031
  8. SEVREDOL [Concomitant]
     Route: 048
     Dates: start: 20061023, end: 20061031

REACTIONS (6)
  - BLOOD CHLORIDE DECREASED [None]
  - BLOOD LACTATE DEHYDROGENASE INCREASED [None]
  - DEATH [None]
  - DISEASE PROGRESSION [None]
  - GAMMA-GLUTAMYLTRANSFERASE INCREASED [None]
  - GENERAL PHYSICAL HEALTH DETERIORATION [None]
